FAERS Safety Report 8155775-5 (Version None)
Quarter: 2012Q1

REPORT INFORMATION
  Report Type: 
  Country: None (occurrence: None)
  Receive Date: 20120222
  Receipt Date: 20120213
  Transmission Date: 20120608
  Serious: Yes (Hospitalization)
  Sender: FDA-Public Use
  Company Number: IT-JNJFOC-20120206894

PATIENT
  Age: 64 Year
  Sex: Male

DRUGS (2)
  1. OLMESARTAN MEDOXOMIL [Concomitant]
     Route: 048
  2. REMICADE [Suspect]
     Indication: PSORIASIS
     Route: 042
     Dates: start: 20051118, end: 20101011

REACTIONS (1)
  - BLADDER TRANSITIONAL CELL CARCINOMA [None]
